FAERS Safety Report 6706324-7 (Version None)
Quarter: 2010Q2

REPORT INFORMATION
  Report Type: 
  Country: None (occurrence: None)
  Receive Date: 20100503
  Receipt Date: 20100423
  Transmission Date: 20101027
  Serious: Yes (Hospitalization, Other)
  Sender: FDA-Public Use
  Company Number: US-ELI_LILLY_AND_COMPANY-US201004006445

PATIENT
  Sex: Male
  Weight: 72.109 kg

DRUGS (5)
  1. BYETTA [Suspect]
     Indication: TYPE 2 DIABETES MELLITUS
     Dosage: UNK, UNKNOWN
     Dates: end: 20091101
  2. PREVACID [Concomitant]
     Indication: ABDOMINAL DISCOMFORT
  3. FLOMAX [Concomitant]
     Dosage: UNK, UNKNOWN
  4. GLYBURIDE [Concomitant]
     Indication: TYPE 2 DIABETES MELLITUS
  5. ACTOS [Concomitant]
     Indication: TYPE 2 DIABETES MELLITUS

REACTIONS (3)
  - BACK PAIN [None]
  - PANCREATIC CARCINOMA [None]
  - WEIGHT DECREASED [None]
